FAERS Safety Report 5238935-2 (Version None)
Quarter: 2007Q1

REPORT INFORMATION
  Report Type: 
  Country: None (occurrence: None)
  Receive Date: 20070215
  Receipt Date: 20070206
  Transmission Date: 20070707
  Serious: Yes (Hospitalization, Other)
  Sender: FDA-Public Use
  Company Number: CA-PFIZER INC-2007010920

PATIENT
  Age: 83 Year
  Sex: Male

DRUGS (2)
  1. ARTHROTEC [Suspect]
     Indication: ARTHRITIS
     Route: 048
  2. ALL OTHER THERAPEUTIC PRODUCTS [Concomitant]
     Route: 065

REACTIONS (5)
  - BLOOD URINE PRESENT [None]
  - CONFUSIONAL STATE [None]
  - DYSPHAGIA [None]
  - GALLBLADDER OBSTRUCTION [None]
  - LIVER DISORDER [None]
